FAERS Safety Report 8122570-2 (Version None)
Quarter: 2012Q1

REPORT INFORMATION
  Report Type: 
  Country: None (occurrence: None)
  Receive Date: 20120208
  Receipt Date: 20120206
  Transmission Date: 20120608
  Serious: Yes (Hospitalization)
  Sender: FDA-Public Use
  Company Number: US-BAYER-2012-012540

PATIENT
  Age: 77 Year
  Sex: Female

DRUGS (1)
  1. ACETYLSALICYLIC ACID SRT [Suspect]
     Dosage: 81 MG, QD
     Dates: start: 20100101

REACTIONS (1)
  - GASTROINTESTINAL HAEMORRHAGE [None]
